FAERS Safety Report 7417466-5 (Version None)
Quarter: 2011Q2

REPORT INFORMATION
  Report Type: 
  Country: None (occurrence: None)
  Receive Date: 20110415
  Receipt Date: 20110412
  Transmission Date: 20111010
  Serious: Yes (Other)
  Sender: FDA-Public Use
  Company Number: US-PFIZER INC-2011080925

PATIENT
  Sex: Male
  Weight: 81.633 kg

DRUGS (4)
  1. LEVOXYL [Concomitant]
     Indication: THYROID DISORDER
     Dosage: UNK
  2. LYRICA [Suspect]
     Indication: PAIN IN EXTREMITY
     Dosage: 200 MG, 2X/DAY
     Route: 048
     Dates: start: 20070101
  3. TAMSULOSIN [Concomitant]
     Dosage: UNK
  4. TOVIAZ [Concomitant]
     Dosage: UNK

REACTIONS (1)
  - LOCAL SWELLING [None]
